FAERS Safety Report 18820496 (Version 3)
Quarter: 2021Q3

REPORT INFORMATION
  Report Type: Spontaneous
  Country: CO (occurrence: CO)
  Receive Date: 20210202
  Receipt Date: 20210826
  Transmission Date: 20211014
  Serious: Yes (Other)
  Sender: FDA-Public Use
  Company Number: CO-AMGEN-COLSP2021013696

PATIENT
  Age: 29 Year
  Sex: Male
  Weight: 66 kg

DRUGS (12)
  1. FOSAPREPITANT [Concomitant]
     Active Substance: FOSAPREPITANT
     Indication: OLIGODENDROGLIOMA
     Dosage: 150 MILLIGRAM, QD
     Route: 042
     Dates: start: 20210122
  2. TEMOZOLAMIDE [Concomitant]
     Active Substance: TEMOZOLOMIDE
     Dosage: UNK
     Dates: start: 20200731
  3. LEVETIRACETAM. [Concomitant]
     Active Substance: LEVETIRACETAM
     Indication: SEIZURE
     Dosage: 1000 MILLIGRAM, BID
     Route: 048
     Dates: start: 20210524
  4. MVASI [Suspect]
     Active Substance: BEVACIZUMAB-AWWB
     Indication: OLIGODENDROGLIOMA
     Dosage: 660 MILLIGRAM, QD
     Route: 042
     Dates: start: 20210122
  5. MVASI [Suspect]
     Active Substance: BEVACIZUMAB-AWWB
     Dosage: 620 MILLIGRAM, QD
     Route: 042
  6. DEXAMETHASONE PHOSPHATE [Concomitant]
     Active Substance: DEXAMETHASONE PHOSPHATE
     Indication: OLIGODENDROGLIOMA
     Dosage: 12 MILLIGRAM, QD
     Route: 042
     Dates: start: 20210122
  7. IRINOTECAN [Concomitant]
     Active Substance: IRINOTECAN
     Indication: OLIGODENDROGLIOMA
     Dosage: 190.12 MILLIGRAM, QD
     Route: 042
     Dates: start: 20210122
  8. ACETAMINOPHEN. [Concomitant]
     Active Substance: ACETAMINOPHEN
     Indication: PAIN
     Dosage: 1 GRAM, Q8H
     Route: 048
     Dates: start: 20210517
  9. LOPERAMIDE HYDROCHLORIDE. [Concomitant]
     Active Substance: LOPERAMIDE HYDROCHLORIDE
     Indication: DIARRHOEA
     Dosage: 2 MILLIGRAM, Q6H FOR 20 DAYS
     Route: 048
     Dates: start: 20210113
  10. ONDANSETRON [Concomitant]
     Active Substance: ONDANSETRON
     Indication: OLIGODENDROGLIOMA
     Dosage: 8 MILLIGRAM, Q12H FOR 20DAYS
     Route: 048
     Dates: start: 20210113
  11. ONDANSETRON [Concomitant]
     Active Substance: ONDANSETRON
     Indication: DIZZINESS
     Dosage: 16 MILLIGRAM, QD
     Route: 042
     Dates: start: 20210122
  12. ATROPINE SULFATE. [Concomitant]
     Active Substance: ATROPINE SULFATE
     Indication: OLIGODENDROGLIOMA
     Dosage: 1 MILLIGRAM PER MILLILITRE, QD FOR 2 DAYS
     Route: 030
     Dates: start: 20210122

REACTIONS (10)
  - Muscle mass [Not Recovered/Not Resolved]
  - Muscle contractions involuntary [Unknown]
  - Diarrhoea [Not Recovered/Not Resolved]
  - Aphasia [Unknown]
  - Dizziness [Recovering/Resolving]
  - Axillary mass [Not Recovered/Not Resolved]
  - Off label use [Not Recovered/Not Resolved]
  - Nausea [Recovering/Resolving]
  - Arthralgia [Not Recovered/Not Resolved]
  - Headache [Recovering/Resolving]

NARRATIVE: CASE EVENT DATE: 20210122
